FAERS Safety Report 5014636-0 (Version None)
Quarter: 2006Q2

REPORT INFORMATION
  Report Type: 
  Country: None (occurrence: None)
  Receive Date: 20060412
  Receipt Date: 20060130
  Transmission Date: 20061013
  Serious: Yes (Hospitalization)
  Sender: FDA-Public Use
  Company Number: 2006-BP-01144BP

PATIENT
  Sex: Female

DRUGS (8)
  1. MOBIC [Suspect]
     Dosage: 30 MG (15 MG, 2 IN 1 D), PO
     Route: 048
  2. ATENOLOL [Concomitant]
  3. PRILOSEC [Concomitant]
  4. GLUCOPHAGE [Concomitant]
  5. GLYBURIDE [Concomitant]
  6. SYNTHROID [Concomitant]
  7. ACTOL (NIFLUMIC ACID) [Concomitant]
  8. LASIX [Concomitant]

REACTIONS (11)
  - AGITATION [None]
  - CHILLS [None]
  - CONSTIPATION [None]
  - DIZZINESS [None]
  - DYSPNOEA [None]
  - FEELING HOT [None]
  - HYPERTENSION [None]
  - PALPITATIONS [None]
  - POLLAKIURIA [None]
  - TACHYCARDIA [None]
  - TREMOR [None]
